FAERS Safety Report 6666487-9 (Version None)
Quarter: 2010Q2

REPORT INFORMATION
  Report Type: 
  Country: None (occurrence: None)
  Receive Date: 20100402
  Receipt Date: 20100326
  Transmission Date: 20101027
  Serious: Yes (Other)
  Sender: FDA-Public Use
  Company Number: US-AMGEN-QUU402331

PATIENT
  Sex: Male

DRUGS (12)
  1. EPOGEN [Suspect]
     Indication: RENAL FAILURE CHRONIC
  2. EPOGEN [Suspect]
     Indication: ANAEMIA
  3. RENALTABS [Concomitant]
  4. FINASTERIDE [Concomitant]
  5. ZETIA [Concomitant]
  6. PLAVIX [Concomitant]
  7. LISINOPRIL [Concomitant]
  8. LISINOPRIL [Concomitant]
  9. AMLODIPINE [Concomitant]
  10. UNSPECIFIED MEDICATION [Concomitant]
  11. LABETALOL HCL [Concomitant]
  12. ZEMPLAR [Concomitant]

REACTIONS (1)
  - MALIGNANT NEOPLASM PROGRESSION [None]
